FAERS Safety Report 16374686 (Version 3)
Quarter: 2019Q2

REPORT INFORMATION
  Report Type: Spontaneous
  Country: JP (occurrence: JP)
  Receive Date: 20190530
  Receipt Date: 20190619
  Transmission Date: 20190711
  Serious: Yes (Hospitalization, Other)
  Sender: FDA-Public Use
  Company Number: JP-009507513-1904JPN003144J

PATIENT
  Age: 75 Year
  Sex: Male
  Weight: 40 kg

DRUGS (9)
  1. KEYTRUDA [Suspect]
     Active Substance: PEMBROLIZUMAB
     Indication: TRANSITIONAL CELL CARCINOMA
     Dosage: 200 MILLIGRAM, Q3W
     Route: 041
     Dates: start: 20181126, end: 20190212
  2. LOXOPROFEN [Concomitant]
     Active Substance: LOXOPROFEN
     Indication: ANALGESIC THERAPY
     Dosage: 60 MILLIGRAM, PRN
     Route: 048
     Dates: start: 20180630
  3. CEFMETAZOLE NA [Suspect]
     Active Substance: CEFMETAZOLE
     Indication: PYELONEPHRITIS
     Dosage: 1 GRAM, BID
     Route: 041
     Dates: start: 20190311, end: 20190311
  4. LOXOPROFEN [Concomitant]
     Active Substance: LOXOPROFEN
     Indication: ANTIPYRESIS
  5. MEROPENEM. [Suspect]
     Active Substance: MEROPENEM
     Indication: SEPSIS
     Dosage: 0.5 GRAM, BID
     Route: 042
     Dates: start: 20190312, end: 20190325
  6. LINZESS [Concomitant]
     Active Substance: LINACLOTIDE
     Indication: CONSTIPATION
     Dosage: 0.5 MILLIGRAM, QD
     Route: 048
     Dates: start: 20181226
  7. CALONAL [Concomitant]
     Active Substance: ACETAMINOPHEN
     Indication: ANTIPYRESIS
  8. CALONAL [Concomitant]
     Active Substance: ACETAMINOPHEN
     Indication: ANALGESIC THERAPY
     Dosage: 300 MILLIGRAM, PRN
     Route: 048
     Dates: start: 20180816
  9. TROXSIN [Concomitant]
     Active Substance: TROXIPIDE
     Indication: PROPHYLAXIS
     Dosage: 100 MILLIGRAM, PRN
     Route: 048
     Dates: start: 20180630

REACTIONS (4)
  - Sepsis [Unknown]
  - Septic shock [Unknown]
  - Colitis [Recovered/Resolved]
  - Pyelonephritis [Unknown]

NARRATIVE: CASE EVENT DATE: 20190311
